FAERS Safety Report 5166030-X (Version None)
Quarter: 2006Q4

REPORT INFORMATION
  Report Type: 
  Country: None (occurrence: None)
  Receive Date: 20061128
  Receipt Date: 20061115
  Transmission Date: 20070319
  Serious: Yes (Hospitalization)
  Sender: FDA-Public Use
  Company Number: 2006PV014799

PATIENT
  Age: 64 Year
  Sex: Female
  Weight: 112.4921 kg

DRUGS (5)
  1. BYETTA [Suspect]
     Indication: DIABETES MELLITUS NON-INSULIN-DEPENDENT
     Dosage: 10 MCG;BID;SC; 5 MCG;BID;SC
     Route: 058
     Dates: start: 20050901, end: 20051101
  2. BYETTA [Suspect]
     Indication: DIABETES MELLITUS NON-INSULIN-DEPENDENT
     Dosage: 10 MCG;BID;SC; 5 MCG;BID;SC
     Route: 058
     Dates: start: 20051101
  3. GLUCOPHAGE [Concomitant]
  4. GLYNASE [Concomitant]
  5. GLYBURIDE [Concomitant]

REACTIONS (11)
  - ABASIA [None]
  - BACK DISORDER [None]
  - DECREASED APPETITE [None]
  - DRUG INEFFECTIVE [None]
  - EARLY SATIETY [None]
  - INJECTION SITE INFLAMMATION [None]
  - INJECTION SITE PAIN [None]
  - INJECTION SITE REACTION [None]
  - LESION OF SCIATIC NERVE [None]
  - NAUSEA [None]
  - WEIGHT DECREASED [None]
